FAERS Safety Report 19923096 (Version 1)
Quarter: 2021Q4

REPORT INFORMATION
  Report Type: Spontaneous
  Country: US (occurrence: US)
  Receive Date: 20211006
  Receipt Date: 20211006
  Transmission Date: 20220303
  Serious: No
  Sender: FDA-Public Use
  Company Number: US-SANOFI-00789384

PATIENT
  Age: 29 Year
  Sex: Male

DRUGS (1)
  1. DUPIXENT [Suspect]
     Active Substance: DUPILUMAB
     Indication: Dermatitis atopic
     Dosage: 300 MG EVERY TWO WEEKS
     Route: 058

REACTIONS (3)
  - Nipple swelling [Recovered/Resolved with Sequelae]
  - Nipple pain [Recovered/Resolved with Sequelae]
  - Rash [Recovered/Resolved with Sequelae]
